FAERS Safety Report 18381059 (Version 1)
Quarter: 2020Q4

REPORT INFORMATION
  Report Type: Spontaneous
  Country: FR (occurrence: FR)
  Receive Date: 20201014
  Receipt Date: 20201014
  Transmission Date: 20210114
  Serious: Yes (Hospitalization)
  Sender: FDA-Public Use
  Company Number: FR-ACCORD-204642

PATIENT
  Age: 64 Year
  Sex: Male
  Weight: 68 kg

DRUGS (3)
  1. CISPLATIN ACCORD [Suspect]
     Active Substance: CISPLATIN
     Indication: LARYNGEAL CANCER STAGE IV
     Route: 042
     Dates: start: 20200914, end: 20200914
  2. FLUOROURACIL ACCORD [Suspect]
     Active Substance: FLUOROURACIL
     Indication: LARYNGEAL CANCER STAGE IV
     Route: 042
     Dates: start: 20200914, end: 20200914
  3. DOCETAXEL ACCORD [Suspect]
     Active Substance: DOCETAXEL
     Indication: LARYNGEAL CANCER STAGE IV
     Route: 042
     Dates: start: 20200914, end: 20200914

REACTIONS (2)
  - Neutropenic colitis [Recovering/Resolving]
  - Off label use [Unknown]

NARRATIVE: CASE EVENT DATE: 20200920
